FAERS Safety Report 16740105 (Version 1)
Quarter: 2019Q3

REPORT INFORMATION
  Report Type: Spontaneous
  Country: DE (occurrence: DE)
  Receive Date: 20190826
  Receipt Date: 20190826
  Transmission Date: 20191005
  Serious: Yes (Hospitalization, Congenital Anomaly)
  Sender: FDA-Public Use
  Company Number: DE-PERRIGO-19DE009981

PATIENT
  Sex: Female

DRUGS (6)
  1. LEVOTHYROXINE. [Concomitant]
     Active Substance: LEVOTHYROXINE
     Indication: FOETAL EXPOSURE DURING PREGNANCY
     Dosage: UNK (1ST-3RD TRIMESTER)
     Route: 064
  2. MOXIFLOXACIN. [Concomitant]
     Active Substance: MOXIFLOXACIN
     Indication: FOETAL EXPOSURE DURING PREGNANCY
     Dosage: UNK (2ND TRIMESTER)
     Route: 064
  3. PROGESTERONE. [Concomitant]
     Active Substance: PROGESTERONE
     Indication: FOETAL EXPOSURE DURING PREGNANCY
     Dosage: UNK (2ND TRIMESTER)
     Route: 064
  4. INSULIN [Concomitant]
     Active Substance: INSULIN NOS
     Indication: FOETAL EXPOSURE DURING PREGNANCY
     Dosage: UNK (2ND-3RD TRIMESTER)
     Route: 064
  5. ESTRADIOL. [Concomitant]
     Active Substance: ESTRADIOL
     Indication: FOETAL EXPOSURE DURING PREGNANCY
     Dosage: UNK (2ND TRIMESTER)
     Route: 064
  6. ACETAMINOPHEN. [Suspect]
     Active Substance: ACETAMINOPHEN
     Indication: FOETAL EXPOSURE DURING PREGNANCY
     Dosage: 500 TO 1000 MG, QD
     Route: 048

REACTIONS (3)
  - Patent ductus arteriosus [Recovered/Resolved]
  - Foetal exposure during pregnancy [Recovered/Resolved]
  - Premature baby [Unknown]
